FAERS Safety Report 5893308-4 (Version None)
Quarter: 2008Q3

REPORT INFORMATION
  Report Type: 
  Country: None (occurrence: None)
  Receive Date: 20080923
  Receipt Date: 20080916
  Transmission Date: 20090109
  Serious: Yes (Other)
  Sender: FDA-Public Use
  Company Number: B0529726A

PATIENT
  Age: 86 Year
  Sex: Male

DRUGS (1)
  1. ZINACEF [Suspect]
     Indication: EYE INFECTION
     Route: 047
     Dates: start: 20080709, end: 20080709

REACTIONS (5)
  - CORNEAL DEPOSITS [None]
  - CORNEAL OPACITY [None]
  - INCORRECT ROUTE OF DRUG ADMINISTRATION [None]
  - OFF LABEL USE [None]
  - PHARMACEUTICAL PRODUCT COMPLAINT [None]
